FAERS Safety Report 25144115 (Version 1)
Quarter: 2025Q2

REPORT INFORMATION
  Report Type: Report from Study
  Country: US (occurrence: US)
  Receive Date: 20250401
  Receipt Date: 20250401
  Transmission Date: 20250716
  Serious: Yes (Other)
  Sender: ALEXION PHARMACEUTICALS
  Company Number: US-ASTRAZENECA-202502USA015407US

PATIENT

DRUGS (3)
  1. OLAPARIB [Suspect]
     Active Substance: OLAPARIB
     Indication: Ovarian cancer
     Dosage: 300 MILLIGRAM, BID
  2. OLAPARIB [Suspect]
     Active Substance: OLAPARIB
     Dosage: 1-150 MG TABLET BY MOUTH IN THE MORNING AND 1-100 MG TABLET BY MOUTH IN THE EVENING
  3. OLAPARIB [Suspect]
     Active Substance: OLAPARIB
     Dosage: 1-150 MG TABLET BY MOUTH IN THE MORNING AND 1-100 MG TABLET BY MOUTH IN THE EVENING

REACTIONS (6)
  - Abdominal pain upper [Not Recovered/Not Resolved]
  - Vomiting [Not Recovered/Not Resolved]
  - Product dose omission issue [Unknown]
  - Renal impairment [Unknown]
  - Malaise [Unknown]
  - Underdose [Unknown]
